FAERS Safety Report 7422548-8 (Version None)
Quarter: 2011Q2

REPORT INFORMATION
  Report Type: 
  Country: None (occurrence: None)
  Receive Date: 20110408
  Receipt Date: 20110328
  Transmission Date: 20111010
  Serious: Yes (Other)
  Sender: FDA-Public Use
  Company Number: 026832

PATIENT
  Sex: Male
  Weight: 10 kg

DRUGS (2)
  1. KEPPRA [Suspect]
     Indication: MYOCLONIC EPILEPSY
     Dosage: (250 MG BID ORAL)
     Route: 048
     Dates: start: 20100801
  2. NOOTROPYL (NOOTROPYL) [Suspect]
     Indication: EPILEPSY
     Dosage: (500 MG TID ORAL)
     Route: 048

REACTIONS (5)
  - ASPIRATION [None]
  - DYSPNOEA [None]
  - MALAISE [None]
  - PRODUCT QUALITY ISSUE [None]
  - ERYTHEMA [None]
